FAERS Safety Report 24298954 (Version 1)
Quarter: 2024Q3

REPORT INFORMATION
  Report Type: Spontaneous
  Country: US (occurrence: US)
  Receive Date: 20240909
  Receipt Date: 20240909
  Transmission Date: 20241017
  Serious: Yes (Other)
  Sender: SUNOVION
  Company Number: US-SMPA-2024SPA002002

PATIENT

DRUGS (6)
  1. APTIOM [Suspect]
     Active Substance: ESLICARBAZEPINE ACETATE
     Indication: Seizure
     Dosage: 400 MG
     Route: 048
     Dates: start: 202405
  2. APTIOM [Suspect]
     Active Substance: ESLICARBAZEPINE ACETATE
     Indication: Epilepsy
     Dosage: 600 MG, QD
     Route: 048
     Dates: start: 202407
  3. DEPAKOTE [Suspect]
     Active Substance: DIVALPROEX SODIUM
     Indication: Seizure
     Dosage: UNK
     Route: 065
     Dates: start: 202405, end: 20240729
  4. LACOSAMIDE [Concomitant]
     Active Substance: LACOSAMIDE
     Indication: Seizure
     Route: 065
  5. LAMOTRIGINE [Concomitant]
     Active Substance: LAMOTRIGINE
     Indication: Seizure
     Route: 065
  6. ZYRTEC [Concomitant]
     Active Substance: CETIRIZINE HYDROCHLORIDE
     Indication: Hypersensitivity
     Dosage: 10 MG, QD
     Route: 065

REACTIONS (13)
  - Seizure [Unknown]
  - Cardiac disorder [Unknown]
  - Undifferentiated connective tissue disease [Unknown]
  - Full blood count abnormal [Unknown]
  - Anxiety [Unknown]
  - Hypertension [Unknown]
  - Coordination abnormal [Unknown]
  - Depression [Unknown]
  - Somnolence [Unknown]
  - Insomnia [Unknown]
  - Fall [Unknown]
  - Dizziness [Unknown]
  - Fatigue [Unknown]

NARRATIVE: CASE EVENT DATE: 20240701
